FAERS Safety Report 11668709 (Version 2)
Quarter: 2016Q1

REPORT INFORMATION
  Report Type: Report from Study
  Country: NZ (occurrence: NZ)
  Receive Date: 20151027
  Receipt Date: 20160121
  Transmission Date: 20160525
  Serious: Yes (Other)
  Sender: FDA-Public Use
  Company Number: NZ-ABBVIE-13P-118-1111611-00

PATIENT
  Sex: Female

DRUGS (7)
  1. HUMIRA [Suspect]
     Active Substance: ADALIMUMAB
     Indication: PSORIATIC ARTHROPATHY
     Route: 058
     Dates: start: 201212
  2. HUMIRA [Suspect]
     Active Substance: ADALIMUMAB
     Indication: PSORIASIS
     Route: 058
  3. IBUPROFEN. [Concomitant]
     Active Substance: IBUPROFEN
     Indication: PSORIATIC ARTHROPATHY
  4. IBUPROFEN. [Concomitant]
     Active Substance: IBUPROFEN
     Indication: PSORIASIS
  5. ETANERCEPT [Concomitant]
     Active Substance: ETANERCEPT
     Indication: PSORIASIS
  6. ETANERCEPT [Concomitant]
     Active Substance: ETANERCEPT
     Indication: PSORIATIC ARTHROPATHY
  7. PREDNISONE. [Concomitant]
     Active Substance: PREDNISONE
     Indication: PRODUCT USED FOR UNKNOWN INDICATION
     Dosage: LOW DOSE

REACTIONS (9)
  - Pain [Unknown]
  - Unevaluable event [Unknown]
  - C-reactive protein increased [Unknown]
  - Exposure during pregnancy [Unknown]
  - Placenta praevia [Unknown]
  - Psoriasis [Not Recovered/Not Resolved]
  - Musculoskeletal stiffness [Unknown]
  - Arthritis [Not Recovered/Not Resolved]
  - Psoriatic arthropathy [Unknown]
